FAERS Safety Report 5009128-9 (Version None)
Quarter: 2006Q2

REPORT INFORMATION
  Report Type: 
  Country: None (occurrence: None)
  Receive Date: 20060523
  Receipt Date: 20060414
  Transmission Date: 20061013
  Serious: Yes (Life-Threatening)
  Sender: FDA-Public Use
  Company Number: JP-MERCK-0604USA04248

PATIENT
  Sex: Male

DRUGS (12)
  1. PEPCID [Suspect]
     Indication: PROPHYLAXIS
     Route: 042
     Dates: start: 20060402, end: 20060417
  2. PEPCID [Suspect]
     Indication: ULCER
     Route: 042
     Dates: start: 20060402, end: 20060417
  3. CIPROXAN [Suspect]
     Route: 042
     Dates: start: 20060413, end: 20060415
  4. VANCOMYCIN [Concomitant]
     Route: 065
     Dates: start: 20060412, end: 20060424
  5. ELASPOL [Concomitant]
     Route: 065
  6. FOY [Concomitant]
     Route: 065
     Dates: start: 20060402
  7. BISOLVON [Concomitant]
     Route: 065
     Dates: start: 20060402
  8. MEROPENEM [Concomitant]
     Route: 065
     Dates: start: 20060408, end: 20060412
  9. TIENAM [Concomitant]
     Route: 065
     Dates: start: 20060412, end: 20060413
  10. MIDAZOLAM [Concomitant]
     Route: 065
     Dates: start: 20060402
  11. LEPETAN [Concomitant]
     Route: 065
     Dates: start: 20060402
  12. SULFADIAZINE, SILVER [Suspect]
     Route: 065

REACTIONS (2)
  - GRANULOCYTOPENIA [None]
  - RHABDOMYOLYSIS [None]
